FAERS Safety Report 5591128-1 (Version None)
Quarter: 2008Q1

REPORT INFORMATION
  Report Type: 
  Country: None (occurrence: None)
  Receive Date: 20080110
  Receipt Date: 20080110
  Transmission Date: 20080703
  Serious: Yes (Hospitalization)
  Sender: FDA-Public Use
  Company Number: None

PATIENT
  Sex: Female
  Weight: 81.2 kg

DRUGS (2)
  1. CARBOPLATIN [Suspect]
     Dosage: 395 MG
     Dates: end: 20071204
  2. TAXOL [Suspect]
     Dosage: 329 MG
     Dates: end: 20071204

REACTIONS (6)
  - CANDIDIASIS [None]
  - DEHYDRATION [None]
  - INTERNATIONAL NORMALISED RATIO FLUCTUATION [None]
  - NEUTROPENIA [None]
  - PULMONARY EMBOLISM [None]
  - STOMATITIS [None]
